FAERS Safety Report 9150870 (Version 2)
Quarter: 2014Q1

REPORT INFORMATION
  Report Type: Spontaneous
  Country: US (occurrence: US)
  Receive Date: 20130308
  Receipt Date: 20140218
  Transmission Date: 20141002
  Serious: Yes (Hospitalization)
  Sender: FDA-Public Use
  Company Number: US-B.I. PHARMACEUTICALS,INC./RIDGEFIELD-2013-BI-05901BP

PATIENT
  Age: 63 Year
  Sex: Female
  Weight: 58.97 kg

DRUGS (5)
  1. SPIRIVA [Suspect]
     Indication: CHRONIC OBSTRUCTIVE PULMONARY DISEASE
     Dosage: 18 MCG
     Route: 055
     Dates: start: 201203
  2. LISINOPRIL HCTZ [Concomitant]
     Indication: HYPERTENSION
     Route: 048
  3. ZYRTEC D [Concomitant]
     Indication: MULTIPLE ALLERGIES
     Route: 048
  4. PROBIOTICS [Concomitant]
     Dosage: 2 ANZ
     Route: 048
  5. METFORMIN [Concomitant]
     Indication: TYPE 2 DIABETES MELLITUS
     Dosage: 1 ANZ
     Route: 048
     Dates: start: 20131028, end: 20131030

REACTIONS (6)
  - Dyspnoea [Recovered/Resolved]
  - Asthenia [Not Recovered/Not Resolved]
  - Diabetes mellitus [Not Recovered/Not Resolved]
  - Nausea [Recovered/Resolved]
  - Dyspepsia [Recovered/Resolved]
  - Dyspnoea [Recovered/Resolved]
